FAERS Safety Report 23921396 (Version 1)
Quarter: 2024Q2

REPORT INFORMATION
  Report Type: Report from Study
  Country: CA (occurrence: None)
  Receive Date: 20240530
  Receipt Date: 20240530
  Transmission Date: 20240716
  Serious: Yes (Hospitalization, Other)
  Sender: FDA-Public Use
  Company Number: 2024A121468

PATIENT
  Age: 591 Month
  Sex: Female

DRUGS (16)
  1. FASENRA [Suspect]
     Active Substance: BENRALIZUMAB
     Indication: Asthma
     Dosage: 30.0MG UNKNOWN
     Route: 058
     Dates: start: 20190604
  2. PREDNISONE [Concomitant]
     Active Substance: PREDNISONE
     Dosage: 30.0MG UNKNOWN
  3. SINGULAIR [Concomitant]
     Active Substance: MONTELUKAST SODIUM
  4. BENADRYL [Concomitant]
     Active Substance: DIPHENHYDRAMINE HYDROCHLORIDE
  5. LASIX [Concomitant]
     Active Substance: FUROSEMIDE
  6. LEVOTHYROXINE [Concomitant]
     Active Substance: LEVOTHYROXINE\LEVOTHYROXINE SODIUM
  7. CALCIUM [Concomitant]
     Active Substance: CALCIUM
  8. RAMIPRIL [Concomitant]
     Active Substance: RAMIPRIL
     Dosage: 1.5MG UNKNOWN
  9. JANUBIA [Concomitant]
  10. GLICLAZIDE [Concomitant]
     Active Substance: GLICLAZIDE
     Dosage: 30MG 4 IN AM30.0MG UNKNOWN
  11. GABAPENTIN [Concomitant]
     Active Substance: GABAPENTIN
  12. PREVACID [Concomitant]
     Active Substance: LANSOPRAZOLE
  13. VENTOLIN [Concomitant]
     Active Substance: ALBUTEROL SULFATE
  14. ATROVENT [Concomitant]
     Active Substance: IPRATROPIUM BROMIDE
  15. SYMBICORT [Concomitant]
     Active Substance: BUDESONIDE\FORMOTEROL FUMARATE DIHYDRATE
  16. XOLAIR [Concomitant]
     Active Substance: OMALIZUMAB

REACTIONS (4)
  - Pain [Unknown]
  - Pulmonary thrombosis [Unknown]
  - Fluid retention [Unknown]
  - COVID-19 [Unknown]

NARRATIVE: CASE EVENT DATE: 20240201
